FAERS Safety Report 18399150 (Version 1)
Quarter: 2020Q4

REPORT INFORMATION
  Report Type: Spontaneous
  Country: DK (occurrence: DK)
  Receive Date: 20201019
  Receipt Date: 20201019
  Transmission Date: 20210114
  Serious: Yes (Hospitalization, Other)
  Sender: FDA-Public Use
  Company Number: DK-NOVOPROD-758501

PATIENT
  Age: 61 Year
  Sex: Male
  Weight: 97 kg

DRUGS (2)
  1. ACETYLSALICYLIC ACID [Suspect]
     Active Substance: ASPIRIN
     Indication: PRODUCT USED FOR UNKNOWN INDICATION
     Dosage: UNK
     Route: 065
     Dates: start: 20110221
  2. OZEMPIC [Suspect]
     Active Substance: SEMAGLUTIDE
     Indication: OBESITY
     Dosage: UNK
     Route: 065
     Dates: start: 20191113

REACTIONS (4)
  - Gastric ulcer [Recovered/Resolved]
  - Off label use [Unknown]
  - Vomiting [Unknown]
  - Abdominal pain [Unknown]

NARRATIVE: CASE EVENT DATE: 20191113
